FAERS Safety Report 7192655-6 (Version None)
Quarter: 2010Q4

REPORT INFORMATION
  Report Type: 
  Country: None (occurrence: None)
  Receive Date: 20101223
  Receipt Date: 20101220
  Transmission Date: 20110411
  Serious: Yes (Other)
  Sender: FDA-Public Use
  Company Number: US-US-EMD SERONO, INC.-7005521

PATIENT
  Sex: Female
  Weight: 111 kg

DRUGS (5)
  1. REBIF [Suspect]
     Indication: MULTIPLE SCLEROSIS
     Route: 058
     Dates: start: 20100507, end: 20100518
  2. REBIF [Suspect]
     Dates: start: 20100709, end: 20100101
  3. REBIF [Suspect]
     Dates: start: 20101210, end: 20101201
  4. REBIF [Suspect]
     Dates: start: 20101201
  5. METFORMIN [Concomitant]
     Indication: POLYCYSTIC OVARIES

REACTIONS (6)
  - DEPRESSION [None]
  - DIZZINESS [None]
  - FEELINGS OF WORTHLESSNESS [None]
  - MOOD SWINGS [None]
  - NASOPHARYNGITIS [None]
  - STRESS [None]
